FAERS Safety Report 16587046 (Version 1)
Quarter: 2019Q3

REPORT INFORMATION
  Report Type: Spontaneous
  Country: US (occurrence: US)
  Receive Date: 20190717
  Receipt Date: 20190717
  Transmission Date: 20191004
  Serious: No
  Sender: FDA-Public Use
  Company Number: US-JNJFOC-20190623567

PATIENT
  Sex: Male

DRUGS (4)
  1. INSULIN HUMAN INJECTION, ISOPHANE [Concomitant]
     Active Substance: INSULIN HUMAN
     Indication: DIABETES MELLITUS
     Dosage: 60 UNITS IN THE MORNING, 20 UNITS AT DINNER TIME DAILY
     Route: 058
     Dates: start: 1994
  2. REMICADE [Suspect]
     Active Substance: INFLIXIMAB
     Indication: COLITIS ULCERATIVE
     Dosage: ADMINISTERED IN HEALTH CARE FACILITY ABOUT 4-5 YEARS AGO
     Route: 042
  3. CRESTOR [Concomitant]
     Active Substance: ROSUVASTATIN CALCIUM
     Indication: BLOOD CHOLESTEROL
     Route: 065
  4. INSULIN, REGULAR [Concomitant]
     Active Substance: INSULIN NOS
     Indication: DIABETES MELLITUS
     Dosage: 14 UNITS IN THE MORNING, 16 UNITS AT DINNER TIME DAILY
     Route: 058
     Dates: start: 1994

REACTIONS (1)
  - Cardiac disorder [Unknown]
